FAERS Safety Report 11440032 (Version 1)
Quarter: 2015Q3

REPORT INFORMATION
  Report Type: Spontaneous
  Country: US (occurrence: US)
  Receive Date: 20150901
  Receipt Date: 20150901
  Transmission Date: 20151125
  Serious: No
  Sender: FDA-Public Use
  Company Number: US-ROCHE-1170484

PATIENT
  Age: 19 Year
  Sex: Male

DRUGS (4)
  1. FOLIC ACID. [Concomitant]
     Active Substance: FOLIC ACID
  2. PEGASYS [Suspect]
     Active Substance: PEGINTERFERON ALFA-2A
     Indication: PRODUCT USED FOR UNKNOWN INDICATION
     Route: 065
  3. RIBASPHERE RIBAPAK [Concomitant]
     Active Substance: RIBAVIRIN
  4. INCIVEK [Concomitant]
     Active Substance: TELAPREVIR

REACTIONS (1)
  - Haemorrhage [Unknown]
